FAERS Safety Report 6214012-9 (Version None)
Quarter: 2009Q2

REPORT INFORMATION
  Report Type: 
  Country: None (occurrence: None)
  Receive Date: 20090601
  Receipt Date: 20090601
  Transmission Date: 20091009
  Serious: Yes (Hospitalization)
  Sender: FDA-Public Use
  Company Number: None

PATIENT
  Age: 42 Year
  Sex: Female
  Weight: 78.0187 kg

DRUGS (1)
  1. BUDPRION SR 150 MG TEVA USA [Suspect]
     Indication: DEPRESSION
     Dosage: 150 TWICE PER DAY PO
     Route: 048
     Dates: start: 20090523, end: 20090528

REACTIONS (12)
  - AMNESIA [None]
  - CARDIAC DISORDER [None]
  - CONFUSIONAL STATE [None]
  - DISTURBANCE IN ATTENTION [None]
  - DIZZINESS [None]
  - DYSARTHRIA [None]
  - HEMIPARESIS [None]
  - HYPOAESTHESIA FACIAL [None]
  - SPEECH DISORDER [None]
  - TONGUE PARALYSIS [None]
  - TRANSIENT ISCHAEMIC ATTACK [None]
  - VISION BLURRED [None]
